FAERS Safety Report 21721065 (Version 2)
Quarter: 2022Q4

REPORT INFORMATION
  Report Type: Spontaneous
  Country: US (occurrence: US)
  Receive Date: 20221213
  Receipt Date: 20221220
  Transmission Date: 20230112
  Serious: Yes (Other)
  Sender: FDA-Public Use
  Company Number: US-drreddys-LIT/USA/22/0158055

PATIENT
  Age: 44 Year
  Sex: Female

DRUGS (5)
  1. HEPARIN SODIUM [Suspect]
     Active Substance: HEPARIN SODIUM
     Indication: Product used for unknown indication
  2. MAGNESIUM [Suspect]
     Active Substance: MAGNESIUM
     Indication: Pre-eclampsia
     Route: 042
  3. MAGNESIUM [Suspect]
     Active Substance: MAGNESIUM
     Dosage: RE-STARTED
  4. LABETALOL [Suspect]
     Active Substance: LABETALOL\LABETALOL HYDROCHLORIDE
     Indication: Product used for unknown indication
  5. KETOROLAC [Suspect]
     Active Substance: KETOROLAC TROMETHAMINE
     Indication: Product used for unknown indication

REACTIONS (4)
  - Hyperkalaemia [Recovering/Resolving]
  - Hypermagnesaemia [Recovered/Resolved]
  - Hypocalcaemia [Recovering/Resolving]
  - Exposure during pregnancy [Unknown]
